FAERS Safety Report 9904307 (Version 1)
Quarter: 2014Q1

REPORT INFORMATION
  Report Type: Spontaneous
  Country: US (occurrence: US)
  Receive Date: 20140218
  Receipt Date: 20140218
  Transmission Date: 20141002
  Serious: No
  Sender: FDA-Public Use
  Company Number: US-PFIZER INC-2014042604

PATIENT
  Age: 61 Year
  Sex: Female
  Weight: 136.05 kg

DRUGS (1)
  1. PRISTIQ [Suspect]
     Dosage: UNK

REACTIONS (4)
  - Feeling abnormal [Unknown]
  - Nervous system disorder [Unknown]
  - Tongue disorder [Unknown]
  - Head discomfort [Unknown]
